FAERS Safety Report 8379093-5 (Version None)
Quarter: 2012Q1

REPORT INFORMATION
  Report Type: 
  Country: None (occurrence: None)
  Receive Date: 20120323
  Receipt Date: 20110324
  Transmission Date: 20120608
  Serious: Yes (Hospitalization, Other)
  Sender: FDA-Public Use
  Company Number: 163-21880-11032820

PATIENT
  Age: 63 Year
  Sex: Female
  Weight: 92.0802 kg

DRUGS (9)
  1. PREDNISONE [Concomitant]
  2. REVLIMID [Suspect]
     Indication: MULTIPLE MYELOMA
     Dosage: 25 MG, 1 IN 1 D, PO 15 MG, QD, EVERY OTHER WEEK, PO
     Route: 048
     Dates: start: 20091211, end: 20100101
  3. REVLIMID [Suspect]
     Indication: MULTIPLE MYELOMA
     Dosage: 25 MG, 1 IN 1 D, PO 15 MG, QD, EVERY OTHER WEEK, PO
     Route: 048
     Dates: start: 20100701
  4. DECADRON [Concomitant]
  5. SYNTHROID [Concomitant]
  6. ULTRACET (ULTRACET) (UNKNOWN) [Concomitant]
  7. LISINOPRIL [Concomitant]
  8. ACYCLOVIR (ACICLOVIR) (UNKNOWN) [Concomitant]
  9. GABAPENTIN [Concomitant]

REACTIONS (1)
  - THROMBOSIS [None]
